FAERS Safety Report 8800762 (Version 1)
Quarter: 2012Q4

REPORT INFORMATION
  Report Type: Report from Study
  Country: FR (occurrence: FR)
  Receive Date: 20120921
  Receipt Date: 20120921
  Transmission Date: 20130627
  Serious: Yes (Death, Hospitalization)
  Sender: FDA-Public Use
  Company Number: FR-BRISTOL-MYERS SQUIBB COMPANY-16950503

PATIENT
  Age: 80 Year
  Sex: Male
  Weight: 67 kg

DRUGS (17)
  1. PACLITAXEL [Suspect]
     Indication: NON-SMALL CELL LUNG CANCER
     Dosage: last dose prior to SAE:13Aug10
14May10-3Jun10
10Jun10-2Sep10
restarted:17Sep-ong
     Route: 042
     Dates: start: 20100514
  2. CARBOPLATIN [Suspect]
     Indication: NON-SMALL CELL LUNG CANCER
     Dosage: last dose prior to SAE:13Aug10
14May10-3Jun10
10Jun10-2Sep10
restarted:17Sep-ong
     Route: 042
     Dates: start: 20100514
  3. BEVACIZUMAB [Suspect]
     Indication: NON-SMALL CELL LUNG CANCER
     Dosage: last dose prior to SAE:13Aug10
14May10-3Jun10
10Jun10-2Sep10
restarted:17Sep-ong
     Route: 042
     Dates: start: 20100514
  4. KYTRIL [Concomitant]
     Dates: start: 20100514
  5. METHYLPREDNISOLONE [Concomitant]
     Dates: start: 20100514
  6. AZANTAC [Concomitant]
     Dates: start: 20100514
  7. PREDNISOLONE SODIUM METASULFOBENZOATE [Concomitant]
     Dates: start: 20100514
  8. NEBILOX [Concomitant]
  9. FERROUS SULFATE [Concomitant]
  10. KARDEGIC [Concomitant]
     Dates: end: 20100413
  11. AMLOR [Concomitant]
     Dates: start: 20100103
  12. INEGY [Concomitant]
     Dosage: 1DF = 10/20 mg
     Dates: start: 20100409
  13. DULCOLAX [Concomitant]
     Dates: start: 20100404
  14. ORINASE [Concomitant]
     Dates: start: 20100409
  15. MACROGOL [Concomitant]
     Dates: start: 20100602
  16. OMEPRAZOLE [Concomitant]
     Dates: start: 20100130
  17. EXFORGE [Concomitant]
     Dates: end: 20100602

REACTIONS (4)
  - Epilepsy [Fatal]
  - Febrile neutropenia [Recovered/Resolved]
  - Bicytopenia [Recovering/Resolving]
  - Hyperkalaemia [Recovered/Resolved]
